FAERS Safety Report 10855287 (Version 1)
Quarter: 2015Q1

REPORT INFORMATION
  Report Type: Spontaneous
  Country: US (occurrence: None)
  Receive Date: 20150218
  Receipt Date: 20150218
  Transmission Date: 20150721
  Serious: Yes (Other)
  Sender: FDA-Public Use
  Company Number: None

PATIENT
  Age: 35 Year
  Sex: Female
  Weight: 63.05 kg

DRUGS (2)
  1. PREDNISONE 20 MG QUALITEST [Suspect]
     Active Substance: PREDNISONE
     Indication: VOMITING
     Dosage: REFER TO PHARM FOR RX TAKEN UNTIL GONE BY MOUTH
     Route: 048
  2. PREDNISONE 20 MG QUALITEST [Suspect]
     Active Substance: PREDNISONE
     Indication: OESOPHAGEAL INJURY
     Dosage: REFER TO PHARM FOR RX TAKEN UNTIL GONE BY MOUTH
     Route: 048

REACTIONS (1)
  - Haematemesis [None]

NARRATIVE: CASE EVENT DATE: 20150115
